FAERS Safety Report 10529508 (Version 1)
Quarter: 2014Q4

REPORT INFORMATION
  Report Type: Spontaneous
  Country: US (occurrence: US)
  Receive Date: 20141021
  Receipt Date: 20141021
  Transmission Date: 20150528
  Serious: Yes (Hospitalization)
  Sender: FDA-Public Use
  Company Number: US-SUN PHARMACEUTICAL INDUSTRIES LTD-2014SUN02352

PATIENT
  Age: 45 Year
  Sex: Female

DRUGS (3)
  1. PHENTERMINE HYDROCHLORIDE 37.5 MG TABLET [Suspect]
     Active Substance: PHENTERMINE HYDROCHLORIDE
     Indication: WEIGHT DECREASED
     Dosage: 37.5 MG, OD
     Route: 065
  2. PHENTERMINE HYDROCHLORIDE 37.5 MG TABLET [Suspect]
     Active Substance: PHENTERMINE HYDROCHLORIDE
     Dosage: 37.5 MG, 2-3 TIMES A WEEK DURING THE PAST YEAR
     Route: 065
  3. PHENTERMINE HYDROCHLORIDE 37.5 MG TABLET [Suspect]
     Active Substance: PHENTERMINE HYDROCHLORIDE
     Dosage: 37.5 MG, 1-2 TIMES A DAY FOR 2 WEEKS BEFORE ARRIVAL AT THE HOSPITAL
     Route: 065

REACTIONS (1)
  - Subarachnoid haemorrhage [Recovered/Resolved]
